FAERS Safety Report 17490955 (Version 1)
Quarter: 2020Q1

REPORT INFORMATION
  Report Type: Spontaneous
  Country: CA (occurrence: CA)
  Receive Date: 20200304
  Receipt Date: 20200304
  Transmission Date: 20200409
  Serious: Yes (Other)
  Sender: FDA-Public Use
  Company Number: CA-PFIZER INC-2020095577

PATIENT
  Age: 28 Year
  Sex: Female
  Weight: 55 kg

DRUGS (1)
  1. ELELYSO [Suspect]
     Active Substance: TALIGLUCERASE ALFA
     Indication: GAUCHER^S DISEASE
     Dosage: 1000 UL, EVERY 2 WEEKS
     Route: 042

REACTIONS (4)
  - Headache [Recovered/Resolved]
  - Hypotension [Recovered/Resolved]
  - Hypersensitivity [Recovered/Resolved]
  - Abdominal pain [Recovered/Resolved]
